FAERS Safety Report 15247179 (Version 1)
Quarter: 2018Q3

REPORT INFORMATION
  Report Type: Spontaneous
  Country: FR (occurrence: FR)
  Receive Date: 20180807
  Receipt Date: 20180807
  Transmission Date: 20181010
  Serious: Yes (Death)
  Sender: FDA-Public Use
  Company Number: FR-MERCK KGAA-2053352

PATIENT
  Age: 72 Year
  Sex: Female

DRUGS (12)
  1. ARACYTINE [Suspect]
     Active Substance: CYTARABINE
     Route: 037
     Dates: start: 20180703, end: 20180703
  2. NEFOPAM MYLAN [Suspect]
     Active Substance: NEFOPAM
     Route: 046
     Dates: start: 20180701, end: 20180712
  3. PANTOPRAZOLE MYLAN [Suspect]
     Active Substance: PANTOPRAZOLE SODIUM
     Route: 048
     Dates: end: 20180720
  4. PRAZEPAM ARROW [Suspect]
     Active Substance: PRAZEPAM
     Route: 048
     Dates: end: 20180712
  5. LANSOYL [Suspect]
     Active Substance: MINERAL OIL
     Route: 048
     Dates: start: 20180630, end: 20180714
  6. VENLAFAXINE BLUEFISH [Suspect]
     Active Substance: VENLAFAXINE HYDROCHLORIDE
     Route: 048
     Dates: end: 20180716
  7. LOVENOX [Suspect]
     Active Substance: ENOXAPARIN SODIUM
     Route: 058
     Dates: start: 20180629, end: 20180719
  8. LERCANIDIPINE [Suspect]
     Active Substance: LERCANIDIPINE
     Route: 048
     Dates: end: 20180712
  9. NOVOTHYROX [Suspect]
     Active Substance: LEVOTHYROXINE SODIUM
     Indication: HYPOTHYROIDISM
     Route: 048
     Dates: end: 20180714
  10. OXYNORM [Suspect]
     Active Substance: OXYCODONE HYDROCHLORIDE
     Route: 048
     Dates: end: 20180714
  11. VALACYCLOVIR [Suspect]
     Active Substance: VALACYCLOVIR HYDROCHLORIDE
     Route: 048
     Dates: end: 20180712
  12. METHOTREXATE BIODIM [Suspect]
     Active Substance: METHOTREXATE
     Route: 037
     Dates: start: 20180703, end: 20180703

REACTIONS (2)
  - Alanine aminotransferase increased [Fatal]
  - Aspartate aminotransferase increased [Fatal]

NARRATIVE: CASE EVENT DATE: 20180704
